FAERS Safety Report 12300465 (Version 2)
Quarter: 2016Q2

REPORT INFORMATION
  Report Type: Spontaneous
  Country: US (occurrence: US)
  Receive Date: 20160425
  Receipt Date: 20160613
  Transmission Date: 20160815
  Serious: No
  Sender: FDA-Public Use
  Company Number: US-PFIZER INC-2016206064

PATIENT
  Age: 57 Year
  Sex: Male
  Weight: 77.11 kg

DRUGS (4)
  1. PROBIOTIC [Concomitant]
     Active Substance: PROBIOTICS NOS
     Indication: DYSPEPSIA
     Dosage: UNK
  2. CHANTIX [Suspect]
     Active Substance: VARENICLINE TARTRATE
     Dosage: 1.71 MG, UNK
     Dates: start: 20160506
  3. CHANTIX [Suspect]
     Active Substance: VARENICLINE TARTRATE
     Indication: SMOKING CESSATION THERAPY
     Dosage: 1 DF, 2X/DAY
     Dates: start: 2016
  4. VITAMIN C [Concomitant]
     Active Substance: ASCORBIC ACID
     Dosage: UNK

REACTIONS (6)
  - Nightmare [Recovered/Resolved]
  - Agitation [Recovered/Resolved]
  - Drug dose omission [Unknown]
  - Abdominal pain upper [Recovered/Resolved]
  - Abnormal dreams [Recovered/Resolved]
  - Tobacco withdrawal symptoms [Recovered/Resolved]

NARRATIVE: CASE EVENT DATE: 201604
